FAERS Safety Report 23441209 (Version 1)
Quarter: 2024Q1

REPORT INFORMATION
  Report Type: Spontaneous
  Country: US (occurrence: US)
  Receive Date: 20240125
  Receipt Date: 20240125
  Transmission Date: 20240410
  Serious: No
  Sender: FDA-Public Use
  Company Number: US-BIOGEN-2024BI01246869

PATIENT
  Sex: Female

DRUGS (1)
  1. VUMERITY [Interacting]
     Active Substance: DIROXIMEL FUMARATE
     Indication: Multiple sclerosis
     Route: 050
     Dates: start: 20211008

REACTIONS (2)
  - Muscle rupture [Not Recovered/Not Resolved]
  - Fall [Recovered/Resolved]
